FAERS Safety Report 23831464 (Version 1)
Quarter: 2024Q2

REPORT INFORMATION
  Report Type: Spontaneous
  Country: CN (occurrence: CN)
  Receive Date: 20240508
  Receipt Date: 20240508
  Transmission Date: 20240716
  Serious: Yes (Other)
  Sender: FDA-Public Use
  Company Number: CN-ELI_LILLY_AND_COMPANY-CN202404017999

PATIENT
  Age: 34 Year
  Sex: Female

DRUGS (2)
  1. DULAGLUTIDE [Suspect]
     Active Substance: DULAGLUTIDE
     Indication: Blood glucose
     Dosage: 1.5 MG, WEEKLY (1/W)
     Route: 058
     Dates: start: 20240324, end: 20240329
  2. LEVOFLOXACIN [Suspect]
     Active Substance: LEVOFLOXACIN
     Indication: Escherichia urinary tract infection
     Dosage: 0.5 G, DAILY
     Route: 065
     Dates: start: 20240326, end: 20240329

REACTIONS (4)
  - Escherichia urinary tract infection [Recovering/Resolving]
  - Injection site pruritus [Recovering/Resolving]
  - Dyspepsia [Recovering/Resolving]
  - Nausea [Recovering/Resolving]

NARRATIVE: CASE EVENT DATE: 20240325
